FAERS Safety Report 9264831 (Version 1)
Quarter: 2013Q2

REPORT INFORMATION
  Report Type: Spontaneous
  Country: IT (occurrence: None)
  Receive Date: 20130429
  Receipt Date: 20130429
  Transmission Date: 20140414
  Serious: Yes (Other)
  Sender: FDA-Public Use
  Company Number: AUR-APL-2013-02837

PATIENT
  Age: 46 Year
  Sex: Female

DRUGS (3)
  1. METFORMIN (METFORMIN) [Suspect]
     Indication: DIABETES MELLITUS
     Dosage: (1500 MG, 1 D), ORAL
     Route: 048
     Dates: start: 20110706, end: 20130307
  2. LEVEMIR [Suspect]
     Indication: DIABETES MELLITUS
     Route: 058
     Dates: start: 20110706, end: 20130307
  3. INSULIN (INSULIN) [Suspect]
     Indication: DIABETES MELLITUS
     Route: 058
     Dates: start: 20110706, end: 20130307

REACTIONS (6)
  - Drug ineffective [None]
  - Body temperature increased [None]
  - Haematocrit decreased [None]
  - Haemoglobin decreased [None]
  - C-reactive protein increased [None]
  - White blood cell count increased [None]
